FAERS Safety Report 5625293-4 (Version None)
Quarter: 2008Q1

REPORT INFORMATION
  Report Type: 
  Country: None (occurrence: None)
  Receive Date: 20080213
  Receipt Date: 20080206
  Transmission Date: 20080703
  Serious: Yes (Disabling)
  Sender: FDA-Public Use
  Company Number: PHBS2007IT11604

PATIENT
  Age: 70 Year
  Sex: Female

DRUGS (11)
  1. ZOMETA [Suspect]
     Indication: BREAST CANCER
     Dosage: 4 MG/MONTH
     Route: 042
     Dates: start: 20030101
  2. ALLOPURINOL [Concomitant]
  3. LANSOX [Concomitant]
  4. DURAGESIC-100 [Concomitant]
  5. FEMARA [Concomitant]
  6. NEURONTIN [Concomitant]
  7. MACROGOL [Concomitant]
     Route: 048
  8. LASIX [Concomitant]
  9. SOLDESAM [Concomitant]
     Route: 048
  10. DICLOREUM [Concomitant]
  11. CLEXANE [Concomitant]
     Route: 058

REACTIONS (2)
  - OSTEONECROSIS [None]
  - TOOTH EXTRACTION [None]
